FAERS Safety Report 19770873 (Version 1)
Quarter: 2021Q3

REPORT INFORMATION
  Report Type: Spontaneous
  Country: US (occurrence: US)
  Receive Date: 20210901
  Receipt Date: 20210901
  Transmission Date: 20211014
  Serious: Yes (Hospitalization)
  Sender: FDA-Public Use
  Company Number: US-009507513-2108USA007581

PATIENT
  Sex: Male

DRUGS (2)
  1. CARBOPLATIN. [Suspect]
     Active Substance: CARBOPLATIN
     Indication: LUNG CARCINOMA CELL TYPE UNSPECIFIED STAGE IV
     Dosage: UNK
  2. KEYTRUDA [Suspect]
     Active Substance: PEMBROLIZUMAB
     Indication: LUNG CARCINOMA CELL TYPE UNSPECIFIED STAGE IV
     Dosage: 200 MILLIGRAM, EVERY 21 DAYS
     Route: 042

REACTIONS (5)
  - Rash macular [Not Recovered/Not Resolved]
  - Vomiting [Unknown]
  - Melanocytic naevus [Not Recovered/Not Resolved]
  - Malaise [Unknown]
  - Nausea [Unknown]
